FAERS Safety Report 20654904 (Version 1)
Quarter: 2022Q1

REPORT INFORMATION
  Report Type: Spontaneous
  Country: US (occurrence: None)
  Receive Date: 20220330
  Receipt Date: 20220330
  Transmission Date: 20220423
  Serious: Yes (Other)
  Sender: FDA-Public Use
  Company Number: None

PATIENT
  Age: 57 Year
  Sex: Female
  Weight: 61.23 kg

DRUGS (1)
  1. CELECOXIB [Suspect]
     Active Substance: CELECOXIB

REACTIONS (2)
  - Rash [None]
  - Anaphylactic reaction [None]

NARRATIVE: CASE EVENT DATE: 20200101
